FAERS Safety Report 9814922 (Version 1)
Quarter: 2014Q1

REPORT INFORMATION
  Report Type: Spontaneous
  Country: US (occurrence: US)
  Receive Date: 20140113
  Receipt Date: 20140113
  Transmission Date: 20141002
  Serious: No
  Sender: FDA-Public Use
  Company Number: US-PFIZER INC-2014007142

PATIENT
  Age: 58 Year
  Sex: Female
  Weight: 95.24 kg

DRUGS (6)
  1. GABAPENTIN [Suspect]
     Indication: NEURALGIA
     Dosage: 100 MG, 3X/DAY
     Route: 048
     Dates: start: 201309, end: 201309
  2. GABAPENTIN [Suspect]
     Indication: FIBROMYALGIA
     Dosage: TWO DOSES OF 100MG
     Route: 048
     Dates: start: 201309, end: 201309
  3. METOPROLOL [Concomitant]
     Indication: CARDIAC DISORDER
     Dosage: UNK
  4. SYNTHROID [Concomitant]
     Dosage: UNK
  5. ACETAZOLAMIDE [Concomitant]
     Dosage: UNK
  6. LISINOPRIL [Concomitant]
     Dosage: UNK

REACTIONS (4)
  - Off label use [Unknown]
  - Hypersensitivity [Unknown]
  - Vomiting [Unknown]
  - Rash [Unknown]
